FAERS Safety Report 20031513 (Version 3)
Quarter: 2022Q1

REPORT INFORMATION
  Report Type: Report from Study
  Country: CA (occurrence: CA)
  Receive Date: 20211103
  Receipt Date: 20220218
  Transmission Date: 20220424
  Serious: Yes (Hospitalization)
  Sender: FDA-Public Use
  Company Number: CA-ABBVIE-21K-028-4138201-00

PATIENT
  Sex: Female

DRUGS (2)
  1. RINVOQ [Suspect]
     Active Substance: UPADACITINIB
     Indication: Rheumatoid arthritis
     Route: 048
     Dates: start: 20210816, end: 20210831
  2. RINVOQ [Suspect]
     Active Substance: UPADACITINIB
     Route: 048
     Dates: start: 2021, end: 2021

REACTIONS (20)
  - Latent tuberculosis [Unknown]
  - Spinal pain [Unknown]
  - Night sweats [Unknown]
  - Headache [Unknown]
  - Pyrexia [Not Recovered/Not Resolved]
  - Hospitalisation [Unknown]
  - Arthralgia [Unknown]
  - Asthenia [Unknown]
  - Feeling abnormal [Unknown]
  - Chills [Unknown]
  - Gastric disorder [Unknown]
  - Chest discomfort [Unknown]
  - Pulmonary pain [Unknown]
  - Dyspnoea [Unknown]
  - Muscle spasms [Unknown]
  - Pain [Not Recovered/Not Resolved]
  - Grip strength decreased [Unknown]
  - Fatigue [Unknown]
  - Nausea [Unknown]
  - Adverse reaction [Unknown]

NARRATIVE: CASE EVENT DATE: 20210101
